FAERS Safety Report 19729760 (Version 1)
Quarter: 2021Q3

REPORT INFORMATION
  Report Type: Spontaneous
  Country: US (occurrence: US)
  Receive Date: 20210820
  Receipt Date: 20210820
  Transmission Date: 20211014
  Serious: No
  Sender: FDA-Public Use
  Company Number: US-PERRIGO-21US008848

PATIENT
  Age: 41 Year
  Sex: Female
  Weight: 61.22 kg

DRUGS (1)
  1. CETIRIZINE?PSEUDOEPHEDRINE [Suspect]
     Active Substance: CETIRIZINE HYDROCHLORIDE\PSEUDOEPHEDRINE HYDROCHLORIDE
     Indication: EAR CONGESTION
     Dosage: 1 TABLET, SINGLE
     Route: 048
     Dates: start: 20210628, end: 20210628

REACTIONS (6)
  - Gait disturbance [Recovering/Resolving]
  - Vertigo [Recovered/Resolved]
  - Vomiting [Recovered/Resolved]
  - Off label use [Recovered/Resolved]
  - Nausea [Recovering/Resolving]
  - Dizziness [Recovering/Resolving]

NARRATIVE: CASE EVENT DATE: 20210628
